FAERS Safety Report 22786614 (Version 4)
Quarter: 2023Q4

REPORT INFORMATION
  Report Type: Report from Study
  Country: US (occurrence: US)
  Receive Date: 20230804
  Receipt Date: 20231218
  Transmission Date: 20240109
  Serious: Yes (Death, Life-Threatening, Hospitalization, Other)
  Sender: FDA-Public Use
  Company Number: US-AUROBINDO-AUR-APL-2023-051132

PATIENT
  Sex: Male
  Weight: 64 kg

DRUGS (4)
  1. BELINOSTAT [Suspect]
     Active Substance: BELINOSTAT
     Indication: Non-Hodgkin^s lymphoma
     Dosage: UNK
     Route: 065
     Dates: start: 20200914
  2. BELINOSTAT [Suspect]
     Active Substance: BELINOSTAT
     Dosage: 750 MILLIGRAM
     Route: 065
     Dates: start: 20230306, end: 20230310
  3. GUADECITABINE [Suspect]
     Active Substance: GUADECITABINE
     Indication: Product used for unknown indication
     Dosage: UNK
     Route: 065
  4. TAZEMETOSTAT [Suspect]
     Active Substance: TAZEMETOSTAT
     Indication: Non-Hodgkin^s lymphoma
     Dosage: 600 MILLIGRAM
     Route: 065
     Dates: start: 20230307, end: 20230321

REACTIONS (11)
  - SARS-CoV-2 test positive [Fatal]
  - Neutrophil count decreased [Recovered/Resolved]
  - Platelet count decreased [Unknown]
  - Transient ischaemic attack [Recovered/Resolved]
  - Sinusitis [Recovered/Resolved]
  - Anaemia [Recovered/Resolved]
  - Dyspnoea at rest [Recovering/Resolving]
  - Supraventricular tachycardia [Unknown]
  - Dyspnoea exertional [Recovering/Resolving]
  - Oxygen saturation abnormal [Recovering/Resolving]
  - Pain [Unknown]

NARRATIVE: CASE EVENT DATE: 20200914
